FAERS Safety Report 17225185 (Version 2)
Quarter: 2020Q2

REPORT INFORMATION
  Report Type: Spontaneous
  Country: NL (occurrence: DE)
  Receive Date: 20200102
  Receipt Date: 20200408
  Transmission Date: 20200713
  Serious: Yes (Other)
  Sender: FDA-Public Use
  Company Number: DE-FRESENIUS KABI-FK201914601

PATIENT
  Sex: Female

DRUGS (17)
  1. CISPLATIN. [Suspect]
     Active Substance: CISPLATIN
     Indication: DIFFUSE LARGE B-CELL LYMPHOMA
     Dosage: 2ND LINE THERAPY; R-GDP 1 CYCLE
     Route: 065
     Dates: start: 201811, end: 201811
  2. VINCRISTINE [Suspect]
     Active Substance: VINCRISTINE
     Indication: DIFFUSE LARGE B-CELL LYMPHOMA
     Dosage: 1ST LINE, R-CHOP 6 CYCLES
     Route: 065
     Dates: start: 201710, end: 201801
  3. CYCLOPHOSPHAMIDE. [Suspect]
     Active Substance: CYCLOPHOSPHAMIDE
     Indication: DIFFUSE LARGE B-CELL LYMPHOMA
     Dosage: 1ST LINE, R-CHOP 6 CYCLES
     Route: 065
     Dates: start: 201710, end: 201801
  4. DEXAMETHASONE. [Suspect]
     Active Substance: DEXAMETHASONE
     Indication: DIFFUSE LARGE B-CELL LYMPHOMA
     Dosage: 2ND LINE THERAPY; R-GDP 1 CYCLE.
     Route: 065
     Dates: start: 201811, end: 201811
  5. RITUXIMAB. [Suspect]
     Active Substance: RITUXIMAB
     Indication: DIFFUSE LARGE B-CELL LYMPHOMA
     Dosage: FURTHER LINE, R-DHAP 2 CYCLES
     Route: 065
     Dates: start: 201812, end: 201901
  6. CISPLATIN. [Suspect]
     Active Substance: CISPLATIN
     Dosage: FURTHER LINE; R-DHAP 2 CYCLES.
     Route: 065
     Dates: start: 201812, end: 201901
  7. DEXAMETHASONE. [Suspect]
     Active Substance: DEXAMETHASONE
     Dosage: FURTHER LINES; R-DHAP 2 CYCLES.
     Route: 065
     Dates: start: 201812, end: 201901
  8. ETOPOSIDE. [Concomitant]
     Active Substance: ETOPOSIDE
     Indication: PRODUCT USED FOR UNKNOWN INDICATION
     Dosage: ONE CYCLE, PLUS AUTO-PBSCT
     Route: 065
     Dates: start: 201902, end: 201904
  9. PREDNISONE. [Suspect]
     Active Substance: PREDNISONE
     Indication: DIFFUSE LARGE B-CELL LYMPHOMA
     Dosage: 1ST LINE, R-CHOP 6 CYCLES
     Route: 065
     Dates: start: 201710, end: 201801
  10. CYTARABINE. [Suspect]
     Active Substance: CYTARABINE
     Indication: DIFFUSE LARGE B-CELL LYMPHOMA
     Dosage: FURTHER LINES; R-DHAP 2 CYCLES
     Route: 065
     Dates: start: 201812, end: 201901
  11. CYTARABINE. [Suspect]
     Active Substance: CYTARABINE
     Dosage: ONE CYCLE, PLUS AUTO-PBSCT
     Route: 065
     Dates: start: 201902, end: 201904
  12. RITUXIMAB. [Suspect]
     Active Substance: RITUXIMAB
     Dosage: 1ST LINE, R-CHOP 6 CYCLES
     Route: 065
     Dates: start: 201710, end: 201801
  13. CARMUSTINE. [Concomitant]
     Active Substance: CARMUSTINE
     Indication: PRODUCT USED FOR UNKNOWN INDICATION
     Route: 065
  14. MELPHALAN. [Concomitant]
     Active Substance: MELPHALAN
     Indication: DIFFUSE LARGE B-CELL LYMPHOMA
     Dosage: ONE CYCLE, PLUS AUTO-PBSCT
     Route: 065
     Dates: start: 201902, end: 201904
  15. GEMCITABINE. [Suspect]
     Active Substance: GEMCITABINE
     Indication: DIFFUSE LARGE B-CELL LYMPHOMA
     Dosage: 2ND LINE THERAPY; R-GDP 1 CYCLE.
     Route: 065
     Dates: start: 201811, end: 201811
  16. RITUXIMAB. [Suspect]
     Active Substance: RITUXIMAB
     Dosage: 2ND LINE, R-GDP 1 CYCLE
     Route: 065
     Dates: start: 201811, end: 201811
  17. DOXORUBICIN [Suspect]
     Active Substance: DOXORUBICIN
     Indication: DIFFUSE LARGE B-CELL LYMPHOMA
     Dosage: 1ST LINE, R-CHOP 6 CYCLES
     Route: 065
     Dates: start: 201710, end: 201801

REACTIONS (3)
  - Tachyarrhythmia [Unknown]
  - Pneumonia influenzal [Unknown]
  - Haemoglobin decreased [Unknown]
